FAERS Safety Report 25607790 (Version 1)
Quarter: 2025Q3

REPORT INFORMATION
  Report Type: Spontaneous
  Country: JP (occurrence: JP)
  Receive Date: 20250725
  Receipt Date: 20250725
  Transmission Date: 20251021
  Serious: Yes (Other)
  Sender: DAIICHI
  Company Number: JP-DSJP-DSJ-2023-106235

PATIENT
  Age: 59 Year
  Sex: Male
  Weight: 79 kg

DRUGS (2)
  1. EDOXABAN TOSYLATE [Suspect]
     Active Substance: EDOXABAN TOSYLATE
     Indication: Splenic vein thrombosis
     Route: 065
  2. SORAFENIB [Concomitant]
     Active Substance: SORAFENIB
     Route: 048

REACTIONS (4)
  - Hepatocellular carcinoma [Recovered/Resolved]
  - Metastases to liver [Recovered/Resolved]
  - Metastases to adrenals [Recovered/Resolved]
  - Prothrombin time shortened [Unknown]
